FAERS Safety Report 12447088 (Version 2)
Quarter: 2016Q2

REPORT INFORMATION
  Report Type: Spontaneous
  Country: US (occurrence: US)
  Receive Date: 20160608
  Receipt Date: 20160622
  Transmission Date: 20160815
  Serious: Yes (Hospitalization, Other)
  Sender: FDA-Public Use
  Company Number: US-TEVA-666386USA

PATIENT
  Age: 37 Year
  Sex: Female

DRUGS (3)
  1. CYCLOPHOSPHAMIDE. [Suspect]
     Active Substance: CYCLOPHOSPHAMIDE
     Indication: MEDULLOBLASTOMA
     Dosage: CYCLE DAY 3 AND REPEATED EVERY THREE WEEKS
     Route: 042
  2. ETOPOSIDE. [Suspect]
     Active Substance: ETOPOSIDE
     Indication: MEDULLOBLASTOMA
     Dosage: CYCLE DAYS 1, 2 AND 3 AND REPEATED EVERY THREE WEEKS
     Route: 042
  3. CISPLATIN. [Suspect]
     Active Substance: CISPLATIN
     Indication: MEDULLOBLASTOMA
     Dosage: CYCLES DAYS 1, 2, AND 3 AND REPEATED EVERY THREE WEEKS
     Route: 042

REACTIONS (2)
  - Febrile neutropenia [Unknown]
  - Acute kidney injury [Unknown]
